FAERS Safety Report 8542269-8 (Version None)
Quarter: 2012Q3

REPORT INFORMATION
  Report Type: 
  Country: None (occurrence: None)
  Receive Date: 20120726
  Receipt Date: 20120717
  Transmission Date: 20120928
  Serious: No
  Sender: FDA-Public Use
  Company Number: US-ASTRAZENECA-2012SE37265

PATIENT
  Age: 58 Year
  Sex: Female
  Weight: 47.6 kg

DRUGS (1)
  1. ZESTORETIC [Suspect]
     Indication: HYPERTENSION
     Dosage: 10+12.5 MG DAILY
     Route: 048
     Dates: start: 20010301

REACTIONS (3)
  - POLLAKIURIA [None]
  - OFF LABEL USE [None]
  - HYPOKALAEMIA [None]
